FAERS Safety Report 5361314-4 (Version None)
Quarter: 2007Q2

REPORT INFORMATION
  Report Type: 
  Country: None (occurrence: None)
  Receive Date: 20070614
  Receipt Date: 20070606
  Transmission Date: 20071010
  Serious: Yes (Hospitalization, Disabling, Other)
  Sender: FDA-Public Use
  Company Number: 15765

PATIENT
  Age: 25 Year
  Sex: Male

DRUGS (19)
  1. METHOTREXATE [Suspect]
     Indication: NON-HODGKIN'S LYMPHOMA
     Dates: start: 20030101, end: 20030701
  2. METHOTREXATE [Suspect]
     Indication: NON-HODGKIN'S LYMPHOMA
     Dosage: 12 MG IT
     Route: 037
     Dates: start: 20030110
  3. METHOTREXATE [Suspect]
     Indication: NON-HODGKIN'S LYMPHOMA
     Dosage: 12 MG IT
     Route: 037
     Dates: start: 20030312
  4. METHOTREXATE [Suspect]
     Indication: NON-HODGKIN'S LYMPHOMA
     Dosage: 12 MG IT
     Route: 037
     Dates: start: 20030609
  5. METHOTREXATE [Suspect]
     Indication: NON-HODGKIN'S LYMPHOMA
     Dosage: 12 MG IT
     Route: 037
     Dates: start: 20031018
  6. CYTARABINE [Suspect]
     Indication: NON-HODGKIN'S LYMPHOMA
     Dates: start: 20030101, end: 20030701
  7. CYTARABINE [Suspect]
     Indication: NON-HODGKIN'S LYMPHOMA
     Dosage: 100 MG IT
     Route: 037
     Dates: start: 20030115
  8. CYTARABINE [Suspect]
  9. CYTARABINE [Suspect]
     Dosage: 100 MG IT
     Route: 037
     Dates: start: 20030217
  10. CYTARABINE [Suspect]
     Dosage: 100 MG IT
     Route: 037
     Dates: start: 20031219
  11. CYCLOPHOSPHAMIDE [Concomitant]
  12. VINCRISTINE [Concomitant]
  13. DOXORUBICIN HCL [Concomitant]
  14. DEXAMETHASONE 0.5MG TAB [Concomitant]
  15. RADIOTHERAPY [Concomitant]
  16. IDARUBICIN HCL [Concomitant]
  17. FLUDARABINE PHOSPHATE [Concomitant]
  18. MULTIVITAMIN [Concomitant]
  19. ANTIBIOTICS [Concomitant]

REACTIONS (17)
  - AREFLEXIA [None]
  - BK VIRUS INFECTION [None]
  - BONE MARROW DISORDER [None]
  - CEREBRAL HAEMORRHAGE [None]
  - CEREBRAL INFARCTION [None]
  - CSF PROTEIN INCREASED [None]
  - FEBRILE NEUTROPENIA [None]
  - GASTROINTESTINAL HAEMORRHAGE [None]
  - GRAFT VERSUS HOST DISEASE [None]
  - HAEMATURIA [None]
  - MYELOPATHY [None]
  - NO THERAPEUTIC RESPONSE [None]
  - PARAESTHESIA [None]
  - PARALYSIS FLACCID [None]
  - SENSORY DISTURBANCE [None]
  - SEPSIS [None]
  - STEM CELL TRANSPLANT [None]
